FAERS Safety Report 9100857 (Version 1)
Quarter: 2013Q1

REPORT INFORMATION
  Report Type: Spontaneous
  Country: US (occurrence: US)
  Receive Date: 20130215
  Receipt Date: 20130215
  Transmission Date: 20140127
  Serious: Yes (Hospitalization)
  Sender: FDA-Public Use
  Company Number: US-ROCHE-GNE323377

PATIENT
  Age: 17 Year
  Sex: Female

DRUGS (7)
  1. XOLAIR [Suspect]
     Indication: ASTHMA
     Dosage: UNK
     Route: 058
     Dates: start: 20110817
  2. SINGULAIR [Concomitant]
     Indication: ASTHMA
     Route: 048
     Dates: start: 200909
  3. SALBUTAMOL [Concomitant]
     Indication: ASTHMA
     Route: 055
     Dates: start: 200909
  4. PULMICORT [Concomitant]
     Indication: ASTHMA
     Route: 055
     Dates: start: 200909
  5. ASTEPRO [Concomitant]
     Indication: RHEUMATOID ARTHRITIS
     Route: 045
     Dates: start: 201109
  6. PLAQUENIL [Concomitant]
     Indication: RHEUMATOID ARTHRITIS
     Route: 048
     Dates: start: 200909
  7. METHOTREXATE [Concomitant]
     Indication: RHEUMATOID ARTHRITIS
     Route: 058
     Dates: start: 200909

REACTIONS (8)
  - Feeling abnormal [Unknown]
  - Dyspnoea [Unknown]
  - Urticaria [Unknown]
  - Pyrexia [Unknown]
  - Hypersensitivity [Recovered/Resolved]
  - Urticaria [Unknown]
  - Bronchospasm [Unknown]
  - Wheezing [Unknown]
